FAERS Safety Report 17147265 (Version 7)
Quarter: 2022Q1

REPORT INFORMATION
  Report Type: Spontaneous
  Country: FR (occurrence: FR)
  Receive Date: 20191212
  Receipt Date: 20220125
  Transmission Date: 20220423
  Serious: Yes (Hospitalization, Disabling, Other)
  Sender: FDA-Public Use
  Company Number: FR-GSKJP-FR2019EME217575AA

PATIENT
  Age: 62 Year
  Sex: Male
  Weight: 110 kg

DRUGS (29)
  1. ROPINIROLE [Suspect]
     Active Substance: ROPINIROLE
     Indication: Restless legs syndrome
     Dosage: 2 MG, QD
     Dates: start: 20060526, end: 200811
  2. ROPINIROLE [Suspect]
     Active Substance: ROPINIROLE
     Dosage: 4 MG, QD
     Dates: end: 200811
  3. ROPINIROLE [Suspect]
     Active Substance: ROPINIROLE
     Dosage: 3.5 MG, QD, IF NECESSARY FOUR) IN THE EVENING
  4. OXAZEPAM [Suspect]
     Active Substance: OXAZEPAM
     Indication: Product used for unknown indication
     Dosage: UNK
     Dates: start: 2011, end: 201304
  5. REQUIP [Suspect]
     Active Substance: ROPINIROLE HYDROCHLORIDE
     Indication: Restless legs syndrome
     Dosage: UNK
     Dates: start: 2004
  6. REQUIP [Suspect]
     Active Substance: ROPINIROLE HYDROCHLORIDE
     Dosage: 0.5 MG
     Dates: start: 20050502, end: 200606
  7. REQUIP [Suspect]
     Active Substance: ROPINIROLE HYDROCHLORIDE
     Dosage: 3 MG
     Dates: start: 2006
  8. REQUIP [Suspect]
     Active Substance: ROPINIROLE HYDROCHLORIDE
     Dosage: 4 MG, QD IN EVENING
  9. LITHIUM [Suspect]
     Active Substance: LITHIUM
     Indication: Bipolar I disorder
     Dosage: UNK
     Dates: start: 20030107, end: 2004
  10. DEPAKOTE [Suspect]
     Active Substance: DIVALPROEX SODIUM
     Indication: Bipolar I disorder
     Dosage: 1500 MG, QD
     Dates: start: 200301, end: 201210
  11. DEPAKOTE [Suspect]
     Active Substance: DIVALPROEX SODIUM
     Dosage: 500 MG, BID, 500: 1.0.1,
  12. DEPAKOTE [Suspect]
     Active Substance: DIVALPROEX SODIUM
     Dosage: 250 MG, QD, 250: AT NOON
  13. EFFEXOR [Suspect]
     Active Substance: VENLAFAXINE HYDROCHLORIDE
     Indication: Product used for unknown indication
     Dosage: UNKSTRENGTH: 75
     Dates: start: 2011
  14. PRAMIPEXOLE [Suspect]
     Active Substance: PRAMIPEXOLE
     Indication: Restless legs syndrome
     Dosage: 0.18 MG, TID
     Dates: start: 20081117, end: 200904
  15. PRAMIPEXOLE [Suspect]
     Active Substance: PRAMIPEXOLE
     Dosage: 0.72 ML
     Dates: start: 200904, end: 20120420
  16. PRAMIPEXOLE [Suspect]
     Active Substance: PRAMIPEXOLE
     Dosage: UNK
     Dates: end: 201203
  17. PIRIBEDIL [Suspect]
     Active Substance: PIRIBEDIL
     Indication: Restless legs syndrome
     Dosage: UNK
     Dates: start: 2002
  18. PIRIBEDIL [Suspect]
     Active Substance: PIRIBEDIL
     Dosage: 50 MG, 50: 0.0 .1
     Dates: start: 200407, end: 200412
  19. VALPROMIDE [Suspect]
     Active Substance: VALPROMIDE
     Indication: Bipolar I disorder
     Dosage: UNK
     Dates: start: 2001, end: 2003
  20. HERBALS\SAW PALMETTO [Suspect]
     Active Substance: HERBALS\SAW PALMETTO
     Indication: Product used for unknown indication
     Dosage: 2 DF, QD
  21. MIANSERIN [Suspect]
     Active Substance: MIANSERIN
     Indication: Product used for unknown indication
     Dosage: UNK, 60: 0.0.0.1;
  22. PRAZEPAM [Suspect]
     Active Substance: PRAZEPAM
     Indication: Product used for unknown indication
     Dosage: UNK, QD,10: 1?2 TO 1/AT BEDTIME
  23. PRAZEPAM [Suspect]
     Active Substance: PRAZEPAM
     Dosage: UNK UNK, TID, 10: 1.1.1
  24. PANTOPRAZOLE [Suspect]
     Active Substance: PANTOPRAZOLE
     Indication: Product used for unknown indication
     Dosage: UNK UNK, QD, 20: 0.0.1
  25. VOLTAREN [Concomitant]
     Active Substance: DICLOFENAC SODIUM
     Indication: Product used for unknown indication
     Dosage: UNK UNK, QD, 75 LP AT DINNER
  26. BETAHISTINE [Concomitant]
     Active Substance: BETAHISTINE
     Indication: Product used for unknown indication
  27. OLMIFON [Concomitant]
     Indication: Product used for unknown indication
  28. ETIFOXINE [Concomitant]
     Active Substance: ETIFOXINE
     Indication: Product used for unknown indication
     Dosage: UNK
  29. NABUMETONE [Concomitant]
     Active Substance: NABUMETONE
     Indication: Product used for unknown indication
     Dosage: UNK

REACTIONS (50)
  - Bipolar disorder [Not Recovered/Not Resolved]
  - Anxiety [Unknown]
  - Depression [Unknown]
  - Confusional state [Unknown]
  - Dementia [Unknown]
  - Apathy [Not Recovered/Not Resolved]
  - Polyneuropathy [Not Recovered/Not Resolved]
  - Procrastination [Not Recovered/Not Resolved]
  - Mental impairment [Unknown]
  - Dementia Alzheimer^s type [Unknown]
  - General physical health deterioration [Not Recovered/Not Resolved]
  - Schizoaffective disorder [Unknown]
  - Cognitive disorder [Not Recovered/Not Resolved]
  - Emotional disorder [Not Recovered/Not Resolved]
  - Bipolar I disorder [Unknown]
  - Restless legs syndrome [Recovered/Resolved]
  - Condition aggravated [Recovered/Resolved]
  - Disorientation [Unknown]
  - Libido increased [Unknown]
  - Loss of personal independence in daily activities [Unknown]
  - Mental disorder [Unknown]
  - Agitation [Unknown]
  - Psychiatric symptom [Unknown]
  - Poor quality sleep [Unknown]
  - Sleep apnoea syndrome [Unknown]
  - Hepatic steatosis [Unknown]
  - Abnormal behaviour [Unknown]
  - Logorrhoea [Unknown]
  - Tremor [Unknown]
  - Hyperhidrosis [Unknown]
  - Nausea [Unknown]
  - Crying [Unknown]
  - Loss of employment [Unknown]
  - Personal relationship issue [Unknown]
  - Mental disorder [Unknown]
  - Speech disorder [Unknown]
  - Abdominal distension [Unknown]
  - Overweight [Unknown]
  - Pain [Unknown]
  - Hypertension [Unknown]
  - Memory impairment [Unknown]
  - Insomnia [Unknown]
  - Fatigue [Unknown]
  - Adjustment disorder [Unknown]
  - Gambling [Recovered/Resolved]
  - Carpal tunnel syndrome [Recovered/Resolved]
  - Overdose [Unknown]
  - Therapeutic product effect incomplete [Unknown]
  - Incorrect dose administered [Unknown]
  - Drug ineffective [Unknown]

NARRATIVE: CASE EVENT DATE: 20150101
